FAERS Safety Report 4457233-8 (Version None)
Quarter: 2004Q3

REPORT INFORMATION
  Report Type: 
  Country: None (occurrence: None)
  Receive Date: 20040922
  Receipt Date: 20040913
  Transmission Date: 20050211
  Serious: Yes (Hospitalization)
  Sender: FDA-Public Use
  Company Number: 2004233159US

PATIENT
  Age: 58 Year
  Sex: Female
  Weight: 77.1 kg

DRUGS (5)
  1. FLAGYL [Suspect]
     Indication: GIARDIASIS
     Dosage: 250 MG, TID, ORAL
     Route: 048
     Dates: start: 20040421, end: 20040425
  2. LIPITOR [Concomitant]
  3. BEXTRA [Concomitant]
  4. INDERAL [Concomitant]
  5. BENICAR [Concomitant]

REACTIONS (2)
  - DEHYDRATION [None]
  - MALABSORPTION [None]
